FAERS Safety Report 8891250 (Version 2)
Quarter: 2012Q4

REPORT INFORMATION
  Report Type: 
  Country: PT (occurrence: PT)
  Receive Date: 20121107
  Receipt Date: 20121126
  Transmission Date: 20130627
  Serious: Yes (Hospitalization)
  Sender: FDA-Public Use
  Company Number: PT-ASTRAZENECA-2012SE84020

PATIENT
  Age: 46 Year
  Sex: Male

DRUGS (7)
  1. SEROQUEL [Suspect]
     Indication: SCHIZOPHRENIA
     Route: 048
     Dates: start: 20121019, end: 20121021
  2. DIAZEPAM [Concomitant]
     Indication: SCHIZOPHRENIA
     Route: 048
  3. IVABRADINA [Concomitant]
     Indication: TACHYCARDIA PAROXYSMAL
     Route: 048
  4. QUETIAPINA [Concomitant]
     Indication: SCHIZOPHRENIA
     Route: 048
     Dates: start: 2012, end: 201210
  5. FLURAZEPAM [Concomitant]
     Indication: SCHIZOPHRENIA
     Route: 048
     Dates: start: 201209
  6. RISPERIDONA [Concomitant]
     Indication: SCHIZOPHRENIA
     Route: 048
     Dates: start: 201210, end: 20121018
  7. HALDOL DECANOATO [Concomitant]
     Indication: SCHIZOPHRENIA
     Route: 030

REACTIONS (6)
  - Acute pulmonary oedema [Recovered/Resolved]
  - Hyponatraemia [Recovered/Resolved]
  - Hyperhidrosis [Recovered/Resolved]
  - Altered state of consciousness [Recovered/Resolved]
  - Convulsion [Recovered/Resolved]
  - Vomiting [Recovered/Resolved]
